FAERS Safety Report 8082644-1 (Version None)
Quarter: 2012Q1

REPORT INFORMATION
  Report Type: 
  Country: None (occurrence: None)
  Receive Date: 20120127
  Receipt Date: 20110224
  Transmission Date: 20120608
  Serious: No
  Sender: FDA-Public Use
  Company Number: US-ABBOTT-11P-163-0707366-00

PATIENT
  Age: 36 Year
  Sex: Male

DRUGS (6)
  1. TRUVADA [Concomitant]
     Indication: HIV INFECTION
     Dosage: 200/300MG 1 TAB
  2. NICOTINE [Concomitant]
     Indication: PRODUCT USED FOR UNKNOWN INDICATION
     Dosage: PATCH
  3. KLONOPIN [Concomitant]
     Indication: ANXIETY
  4. WELLBUTRIN [Concomitant]
     Indication: DEPRESSION
  5. INTELLENCE [Concomitant]
     Indication: HIV INFECTION
     Dosage: 100MG 2 TABS
  6. HUMIRA [Suspect]
     Indication: ANKYLOSING SPONDYLITIS
     Dates: start: 20101101

REACTIONS (1)
  - INJECTION SITE PAIN [None]
